FAERS Safety Report 7429332 (Version 3)
Quarter: 2014Q3

REPORT INFORMATION
  Report Type: Spontaneous
  Country: FR (occurrence: FR)
  Receive Date: 20100623
  Receipt Date: 20140926
  Transmission Date: 20150326
  Serious: Yes (Hospitalization)
  Sender: FDA-Public Use
  Company Number: FR-BRISTOL-MYERS SQUIBB COMPANY-15154768

PATIENT
  Age: 47 Year
  Sex: Male

DRUGS (8)
  1. NORVIR [Suspect]
     Active Substance: RITONAVIR
     Indication: HIV INFECTION
     Dosage: INTERRUPTED: 08-MAY-2010?REINTRODUCED IN MAR-2011
     Route: 048
     Dates: start: 20100426
  2. TRUVADA [Suspect]
     Active Substance: EMTRICITABINE\TENOFOVIR DISOPROXIL FUMARATE
     Indication: HIV INFECTION
     Dosage: INTERRUPTED: 08-MAY-2010?REINTRODUCED IN MAR-2011
     Route: 048
     Dates: start: 20100426
  3. ZELITREX [Concomitant]
     Active Substance: VALACYCLOVIR HYDROCHLORIDE
  4. BACTRIM [Suspect]
     Active Substance: SULFAMETHOXAZOLE\TRIMETHOPRIM
     Indication: PROPHYLAXIS
     Route: 048
     Dates: start: 20100414, end: 20100504
  5. REYATAZ [Suspect]
     Active Substance: ATAZANAVIR SULFATE
     Indication: HIV INFECTION
     Dosage: INTERRUPTED: 08-MAY-2010?REINTRODUCED IN MAR-2011
     Route: 048
     Dates: start: 20100426
  6. TOPALGIC [Concomitant]
     Active Substance: TRAMADOL
  7. LYRICA [Concomitant]
     Active Substance: PREGABALIN
  8. TARKA [Concomitant]
     Active Substance: TRANDOLAPRIL\VERAPAMIL HYDROCHLORIDE

REACTIONS (1)
  - Drug reaction with eosinophilia and systemic symptoms [Recovered/Resolved]

NARRATIVE: CASE EVENT DATE: 20100418
